FAERS Safety Report 22700248 (Version 3)
Quarter: 2024Q3

REPORT INFORMATION
  Report Type: Report from Study
  Country: EG (occurrence: EG)
  Receive Date: 20230713
  Receipt Date: 20240919
  Transmission Date: 20241017
  Serious: Yes (Other)
  Sender: NOVARTIS
  Company Number: EG-002147023-NVSC2023EG154299

PATIENT
  Age: 44 Year
  Sex: Female

DRUGS (6)
  1. GILENYA [Suspect]
     Active Substance: FINGOLIMOD HYDROCHLORIDE
     Indication: Multiple sclerosis
     Dosage: 0.5 MG, QD
     Route: 048
     Dates: start: 20220911, end: 20230601
  2. MAYZENT [Suspect]
     Active Substance: SIPONIMOD
     Indication: Multiple sclerosis
     Dosage: 0.25 MG
     Route: 065
  3. MAYZENT [Suspect]
     Active Substance: SIPONIMOD
     Dosage: 2 MG
     Route: 065
  4. OMEGA 3 [Concomitant]
     Active Substance: CAPSAICIN
     Indication: Supplementation therapy
     Dosage: 1 DOSAGE FORM, QD
     Route: 065
     Dates: start: 2015
  5. VIDROP [Concomitant]
     Indication: Vitamin D decreased
     Dosage: UNK UNK, QW (ONE BOTTLE EVERY WEEK)
     Route: 065
     Dates: start: 2015
  6. DEVAROL S [Concomitant]
     Indication: Vitamin D decreased
     Dosage: 1 DOSAGE FORM, EVERY 15 DAY (AMPOULE, 200.000)
     Route: 065
     Dates: start: 2015

REACTIONS (12)
  - Multiple sclerosis relapse [Recovered/Resolved]
  - Hypoaesthesia [Recovered/Resolved]
  - Diplopia [Recovered/Resolved]
  - Balance disorder [Recovered/Resolved]
  - Multiple sclerosis relapse [Unknown]
  - Dizziness [Unknown]
  - Balance disorder [Unknown]
  - Headache [Recovering/Resolving]
  - Arthritis [Recovered/Resolved]
  - Hepatic enzyme increased [Unknown]
  - Anaemia [Unknown]
  - Fatigue [Recovered/Resolved]

NARRATIVE: CASE EVENT DATE: 20220901
